FAERS Safety Report 22614496 (Version 1)
Quarter: 2023Q2

REPORT INFORMATION
  Report Type: Spontaneous
  Country: US (occurrence: US)
  Receive Date: 20230619
  Receipt Date: 20230619
  Transmission Date: 20230722
  Serious: No
  Sender: FDA-Public Use
  Company Number: ENDG23-02339

PATIENT
  Age: 75 Year
  Sex: Female

DRUGS (2)
  1. BISMUTH SUBCITRATE POTASSIUM, METRONIDAZOLE AND TETRACYCLINE HYDROCHLO [Suspect]
     Active Substance: BISMUTH SUBCITRATE POTASSIUM\METRONIDAZOLE\TETRACYCLINE HYDROCHLORIDE
     Indication: Helicobacter infection
     Dosage: UNK UNKNOWN, UNKNOWN
     Route: 048
     Dates: start: 202305, end: 202305
  2. OMEPRAZOLE [Concomitant]
     Active Substance: OMEPRAZOLE
     Indication: Helicobacter infection
     Dosage: UNK UNKNOWN, UNKNOWN
     Route: 065
     Dates: start: 202305, end: 202305

REACTIONS (3)
  - Burning sensation [Recovered/Resolved]
  - Eructation [Recovered/Resolved]
  - Off label use [Recovered/Resolved]

NARRATIVE: CASE EVENT DATE: 20230501
